FAERS Safety Report 7509977-9 (Version None)
Quarter: 2011Q2

REPORT INFORMATION
  Report Type: 
  Country: None (occurrence: None)
  Receive Date: 20110527
  Receipt Date: 20101104
  Transmission Date: 20111010
  Serious: Yes (Other)
  Sender: FDA-Public Use
  Company Number: US-BAYER-201029194NA

PATIENT
  Age: 24 Year
  Sex: Female
  Weight: 56.689 kg

DRUGS (2)
  1. OMEPRAZOLE [Concomitant]
     Dosage: 20 MG, BID
     Route: 048
  2. YAZ [Suspect]
     Indication: CONTRACEPTION
     Dosage: UNK UNK, UNK
     Route: 048
     Dates: start: 20090201, end: 20090901

REACTIONS (9)
  - CHILLS [None]
  - ABDOMINAL PAIN [None]
  - COUGH [None]
  - CHOLECYSTITIS CHRONIC [None]
  - PULMONARY CONGESTION [None]
  - EAR PAIN [None]
  - CYSTITIS [None]
  - GALLBLADDER DISORDER [None]
  - WHEEZING [None]
